FAERS Safety Report 8855068 (Version 2)
Quarter: 2012Q4

REPORT INFORMATION
  Report Type: 
  Country: US (occurrence: US)
  Receive Date: 20121023
  Receipt Date: 20121031
  Transmission Date: 20130627
  Serious: Yes (Other)
  Sender: FDA-Public Use
  Company Number: US-BAYER-2012-110225

PATIENT
  Age: 32 Year
  Sex: Female
  Weight: 60.5 kg

DRUGS (1)
  1. MIRENA [Suspect]
     Indication: CONTRACEPTION
     Dosage: 20 mcg/24hr, CONT
     Route: 015
     Dates: start: 20120912, end: 20121012

REACTIONS (4)
  - Device difficult to use [None]
  - Device dislocation [None]
  - Infection [None]
  - Abdominal pain [None]
